FAERS Safety Report 7674383-3 (Version None)
Quarter: 2011Q3

REPORT INFORMATION
  Report Type: 
  Country: None (occurrence: None)
  Receive Date: 20110810
  Receipt Date: 20110727
  Transmission Date: 20111222
  Serious: Yes (Hospitalization, Other)
  Sender: FDA-Public Use
  Company Number: US-RANBAXY-2011RR-46637

PATIENT
  Sex: Female

DRUGS (17)
  1. CIPROFLOXACIN [Suspect]
     Indication: ANTIBIOTIC THERAPY
     Dosage: 500 MG, UNK
     Route: 048
     Dates: start: 20030707
  2. METHYLPREDNISOLONE [Suspect]
     Indication: STEROID THERAPY
     Dosage: 4 MG, UNK
     Route: 048
     Dates: start: 20020131
  3. METHYLPREDNISOLONE [Suspect]
     Dosage: 4 MG, UNK
     Route: 048
     Dates: start: 20040114
  4. METHYLPREDNISOLONE [Suspect]
     Dosage: 4 MG, UNK
     Route: 048
     Dates: start: 20040126
  5. PREDNISOLONE [Suspect]
     Dosage: 20 MG, UNK
     Route: 048
     Dates: start: 20050517
  6. PREDNISOLONE [Suspect]
     Dosage: 20 MG, UNK
     Route: 048
     Dates: start: 20081231
  7. METHYLPREDNISOLONE [Suspect]
     Dosage: 4 MG, UNK
     Route: 048
     Dates: start: 20050322
  8. METHYLPREDNISOLONE [Suspect]
     Dosage: 4 MG, UNK
     Route: 048
     Dates: start: 20030520
  9. PREDNISOLONE [Suspect]
     Indication: STEROID THERAPY
     Dosage: 50 MG, UNK
     Route: 048
     Dates: start: 20060831
  10. PREDNISOLONE [Suspect]
     Dosage: 20 MG, UNK
     Route: 048
     Dates: start: 20081021
  11. LEVAQUIN [Suspect]
     Dosage: 750 MG, UNK
     Route: 048
     Dates: start: 20081215
  12. PREDNISOLONE [Suspect]
     Dosage: 20 MG, UNK
     Route: 048
     Dates: start: 20081217
  13. LEVAQUIN [Suspect]
     Dosage: 750 MG, UNK
     Route: 048
     Dates: start: 20081231
  14. PREDNISOLONE [Suspect]
     Dosage: 20 MG, UNK
     Route: 048
     Dates: start: 20061011
  15. LEVAQUIN [Suspect]
     Indication: BACTERIAL INFECTION
     Dosage: 500 MG, UNK
     Route: 048
     Dates: start: 20020123, end: 20081204
  16. METHYLPREDNISOLONE [Suspect]
     Dosage: 4 MG, UNK
     Route: 048
     Dates: start: 20041101
  17. METHYLPREDNISOLONE [Suspect]
     Dosage: 4 MG, UNK
     Route: 048
     Dates: start: 20081206

REACTIONS (5)
  - MENTAL DISORDER [None]
  - TENDON RUPTURE [None]
  - EMOTIONAL DISTRESS [None]
  - PLANTAR FASCIITIS [None]
  - TENDONITIS [None]
